FAERS Safety Report 18623380 (Version 1)
Quarter: 2020Q4

REPORT INFORMATION
  Report Type: Spontaneous
  Country: US (occurrence: US)
  Receive Date: 20201216
  Receipt Date: 20201216
  Transmission Date: 20210114
  Serious: No
  Sender: FDA-Public Use
  Company Number: None

PATIENT
  Age: 61 Year
  Sex: Male
  Weight: 109.8 kg

DRUGS (2)
  1. 5-FLUOROURACIL (5-FU) [Suspect]
     Active Substance: FLUOROURACIL
     Dates: end: 20201121
  2. CISPLATIN. [Suspect]
     Active Substance: CISPLATIN
     Dates: end: 20201118

REACTIONS (1)
  - Anaemia [None]

NARRATIVE: CASE EVENT DATE: 20201202
